FAERS Safety Report 4849500-0 (Version None)
Quarter: 2005Q4

REPORT INFORMATION
  Report Type: 
  Country: None (occurrence: None)
  Receive Date: 20051207
  Receipt Date: 20051118
  Transmission Date: 20060501
  Serious: Yes (Hospitalization)
  Sender: FDA-Public Use
  Company Number: 2005BI018145

PATIENT
  Age: 61 Year
  Sex: Female

DRUGS (2)
  1. AMEVIVE [Suspect]
     Indication: PSORIASIS
     Dosage: 15 MG, IM
     Route: 030
     Dates: start: 20040916, end: 20040101
  2. TEMOVATE [Concomitant]

REACTIONS (1)
  - CEREBROVASCULAR ACCIDENT [None]
